FAERS Safety Report 6770268-5 (Version None)
Quarter: 2010Q2

REPORT INFORMATION
  Report Type: 
  Country: None (occurrence: None)
  Receive Date: 20100615
  Receipt Date: 20100609
  Transmission Date: 20101027
  Serious: Yes (Hospitalization)
  Sender: FDA-Public Use
  Company Number: JP-BRISTOL-MYERS SQUIBB COMPANY-15080013

PATIENT
  Age: 85 Year
  Sex: Male

DRUGS (3)
  1. IRBETAN [Suspect]
     Indication: HYPERTENSION
     Dosage: TAB
     Route: 048
     Dates: start: 20091208, end: 20100408
  2. MAINTATE [Concomitant]
     Indication: HYPERTENSION
     Dosage: 17NOV2009-07DEC09; 08DEC09-(2.5MG/D):PO
     Route: 048
     Dates: start: 20091117
  3. AMLODIN [Concomitant]
     Indication: HYPERTENSION
     Route: 048
     Dates: start: 20091124

REACTIONS (1)
  - HEPATIC CIRRHOSIS [None]
